FAERS Safety Report 9301491 (Version 1)
Quarter: 2013Q2

REPORT INFORMATION
  Report Type: Spontaneous
  Country: US (occurrence: None)
  Receive Date: 20130520
  Receipt Date: 20130520
  Transmission Date: 20140414
  Serious: Yes (Hospitalization)
  Sender: FDA-Public Use
  Company Number: None

PATIENT
  Age: 88 Year
  Sex: Male
  Weight: 77.3 kg

DRUGS (1)
  1. ZELBORAF 240MG [Suspect]
     Dosage: 4 TABS BID PO
     Route: 048
     Dates: start: 20130411

REACTIONS (7)
  - Influenza like illness [None]
  - Blood pressure abnormal [None]
  - Rash [None]
  - Rash [None]
  - Chest pain [None]
  - Tremor [None]
  - Decreased appetite [None]
